FAERS Safety Report 8566302-2 (Version None)
Quarter: 2012Q3

REPORT INFORMATION
  Report Type: 
  Country: None (occurrence: None)
  Receive Date: 20120803
  Receipt Date: 20111013
  Transmission Date: 20120928
  Serious: No
  Sender: FDA-Public Use
  Company Number: US-ABBOTT-11P-163-0865277-00

PATIENT
  Age: 67 Year
  Sex: Female
  Weight: 57.204 kg

DRUGS (2)
  1. NIASPAN [Suspect]
     Dates: start: 20110101, end: 20110101
  2. NIASPAN [Suspect]
     Indication: PRODUCT USED FOR UNKNOWN INDICATION
     Dates: start: 20090101, end: 20110101

REACTIONS (1)
  - FLUSHING [None]
